FAERS Safety Report 25494697 (Version 1)
Quarter: 2025Q2

REPORT INFORMATION
  Report Type: Spontaneous
  Country: US (occurrence: None)
  Receive Date: 20250628
  Receipt Date: 20250628
  Transmission Date: 20250716
  Serious: Yes (Hospitalization)
  Sender: FDA-CTU
  Company Number: None

PATIENT
  Age: 64 Year
  Sex: Female
  Weight: 61.8 kg

DRUGS (2)
  1. CARBOPLATIN [Suspect]
     Active Substance: CARBOPLATIN
     Dates: end: 20250609
  2. TAXOL [Suspect]
     Active Substance: PACLITAXEL
     Dates: end: 20250609

REACTIONS (5)
  - Diarrhoea [None]
  - Dizziness [None]
  - Hyperhidrosis [None]
  - Neutropenia [None]
  - Acute kidney injury [None]

NARRATIVE: CASE EVENT DATE: 20250620
